FAERS Safety Report 6130165-5 (Version None)
Quarter: 2009Q1

REPORT INFORMATION
  Report Type: 
  Country: None (occurrence: None)
  Receive Date: 20090324
  Receipt Date: 20090312
  Transmission Date: 20090719
  Serious: Yes (Life-Threatening, Hospitalization)
  Sender: FDA-Public Use
  Company Number: GB-GENENTECH-279431

PATIENT
  Age: 74 Year
  Sex: Female

DRUGS (3)
  1. HERCEPTIN [Suspect]
     Indication: BREAST CANCER
     Dosage: UNK
     Route: 042
     Dates: start: 20081201, end: 20090201
  2. ADCAL-D3 [Concomitant]
     Indication: DRUG USE FOR UNKNOWN INDICATION
     Dosage: UNK
     Dates: end: 20090213
  3. DOXAZOSIN MESYLATE [Concomitant]
     Indication: DRUG USE FOR UNKNOWN INDICATION
     Dosage: UNK
     Dates: end: 20090213

REACTIONS (2)
  - INTRACARDIAC THROMBUS [None]
  - LEFT VENTRICULAR DYSFUNCTION [None]
